FAERS Safety Report 5478417-6 (Version None)
Quarter: 2007Q4

REPORT INFORMATION
  Report Type: 
  Country: None (occurrence: None)
  Receive Date: 20071005
  Receipt Date: 20070920
  Transmission Date: 20080405
  Serious: Yes (Hospitalization)
  Sender: FDA-Public Use
  Company Number: JP-ELI_LILLY_AND_COMPANY-JP200703003625

PATIENT
  Age: 69 Year
  Sex: Female
  Weight: 47 kg

DRUGS (25)
  1. DULOXETINE HYDROCHLORIDE [Suspect]
     Indication: DIABETIC NEUROPATHY
     Dosage: 40 MG, DAILY (1/D)
     Route: 048
     Dates: start: 20060328, end: 20060403
  2. DULOXETINE HYDROCHLORIDE [Suspect]
     Dosage: 60 MG, DAILY (1/D)
     Route: 048
     Dates: start: 20060404, end: 20070305
  3. DULOXETINE HYDROCHLORIDE [Suspect]
     Dosage: 20 MG, DAILY (1/D)
     Route: 048
     Dates: start: 20060321, end: 20060327
  4. DULOXETINE HYDROCHLORIDE [Suspect]
     Dosage: 40 MG, DAILY (1/D)
     Route: 048
     Dates: start: 20070306, end: 20070311
  5. NOVORAPID [Concomitant]
     Indication: TYPE 2 DIABETES MELLITUS
     Dosage: 15 IU, DAILY (1/D)
     Route: 058
     Dates: start: 20070119, end: 20070218
  6. NOVORAPID [Concomitant]
     Dosage: 15 TO 18 IU, DAILY (1/D)
     Route: 058
     Dates: start: 20070219, end: 20070304
  7. NOVORAPID [Concomitant]
     Dosage: 17 IU, DAILY (1/D)
     Route: 065
     Dates: start: 20070305
  8. NOVORAPID [Concomitant]
     Dosage: 18 IU, DAILY (1/D)
     Route: 058
     Dates: end: 20070118
  9. MYCOSPOR [Concomitant]
     Indication: NAIL TINEA
     Route: 061
     Dates: end: 20060802
  10. ASTAT [Concomitant]
     Indication: NAIL TINEA
     Route: 061
     Dates: end: 20060630
  11. SLOW-K [Concomitant]
     Indication: MINERAL SUPPLEMENTATION
     Dosage: 600 MG, DAILY (1/D)
     Route: 048
  12. TEPRENONE [Concomitant]
     Indication: GASTROINTESTINAL MUCOSAL DISORDER
     Dosage: 150 MG, DAILY (1/D)
     Route: 048
  13. KETOPROFEN [Concomitant]
     Indication: OSTEOARTHRITIS
     Route: 061
  14. DERMOVATE [Concomitant]
     Indication: HYPERKERATOSIS PALMARIS AND PLANTARIS
     Route: 061
     Dates: end: 20060705
  15. KARY UNI [Concomitant]
     Indication: CATARACT
     Route: 047
  16. SENNARIDE [Concomitant]
     Indication: CONSTIPATION
     Dosage: 24 MG, DAILY (1/D)
     Route: 048
  17. CILOSTATE [Concomitant]
     Indication: THROMBOSIS PROPHYLAXIS
     Dosage: 100 MG, DAILY (1/D)
     Route: 048
  18. NORVASC [Concomitant]
     Indication: HYPERTENSION
     Dosage: 2.5 MG, DAILY (1/D)
     Route: 048
  19. CANDESARTAN CILEXETIL [Concomitant]
     Indication: HYPERTENSION
     Dosage: 8 MG, DAILY (1/D)
     Route: 048
  20. BUFFERIN [Concomitant]
     Indication: THROMBOSIS PROPHYLAXIS
     Dosage: 81 MG, DAILY (1/D)
     Route: 048
  21. KERATINAMIN [Concomitant]
     Indication: HYPERKERATOSIS PALMARIS AND PLANTARIS
     Route: 061
     Dates: end: 20060625
  22. NOVOLIN 50/50 [Concomitant]
     Indication: TYPE 2 DIABETES MELLITUS
     Dosage: 5 IU, DAILY (1/D)
     Route: 058
     Dates: start: 20070119, end: 20070218
  23. NOVOLIN 50/50 [Concomitant]
     Dosage: 5 TO 6 IU, DAILY (1/D)
     Route: 058
     Dates: start: 20070219
  24. NOVOLIN 50/50 [Concomitant]
     Dosage: 6 IU, DAILY (1/D)
     Route: 058
     Dates: end: 20070118
  25. SYMMETREL [Concomitant]
     Indication: CEREBRAL INFARCTION
     Dosage: 100 MG, DAILY (1/D)
     Route: 048
     Dates: start: 20070205

REACTIONS (5)
  - LEIOMYOMA [None]
  - METASTASES TO LIVER [None]
  - METASTASES TO LUNG [None]
  - METASTASES TO UTERUS [None]
  - RECTAL CANCER [None]
